FAERS Safety Report 19726181 (Version 1)
Quarter: 2021Q3

REPORT INFORMATION
  Report Type: Spontaneous
  Country: FI (occurrence: FI)
  Receive Date: 20210820
  Receipt Date: 20210820
  Transmission Date: 20211014
  Serious: Yes (Death, Hospitalization, Other)
  Sender: FDA-Public Use
  Company Number: FI-AMGEN-FINSP2021124839

PATIENT

DRUGS (14)
  1. IFOSFAMIDE. [Concomitant]
     Active Substance: IFOSFAMIDE
     Indication: NON-HODGKIN^S LYMPHOMA
     Dosage: 5000 MILLIGRAM/SQ. METER
  2. ETOPOSIDE. [Concomitant]
     Active Substance: ETOPOSIDE
     Indication: NON-HODGKIN^S LYMPHOMA
     Dosage: 100 MILLIGRAM/SQ. METER
  3. VINDESINE [Concomitant]
     Active Substance: VINDESINE
     Indication: NON-HODGKIN^S LYMPHOMA
     Dosage: 5 MILLIGRAM/SQ. METER
  4. CYCLOPHOSPHAMIDE. [Concomitant]
     Active Substance: CYCLOPHOSPHAMIDE
     Indication: NON-HODGKIN^S LYMPHOMA
     Dosage: 1500 MILLIGRAM/SQ. METER
  5. DEXAMETHASONE. [Concomitant]
     Active Substance: DEXAMETHASONE
     Indication: NON-HODGKIN^S LYMPHOMA
     Dosage: 40 MILLIGRAM
  6. CARMUSTINE MACURE [Concomitant]
     Indication: NON-HODGKIN^S LYMPHOMA
     Dosage: 300 MILLIGRAM/SQ. METER
  7. CYTARABINE. [Concomitant]
     Active Substance: CYTARABINE
     Indication: NON-HODGKIN^S LYMPHOMA
     Dosage: 2000 MILLIGRAM/SQ. METER, Q12H
  8. CARBOPLATIN. [Concomitant]
     Active Substance: CARBOPLATIN
     Indication: NON-HODGKIN^S LYMPHOMA
     Dosage: 400 MILLIGRAM/SQ. METER
  9. PEGFILGRASTIM [Suspect]
     Active Substance: PEGFILGRASTIM
     Indication: HAEMATOPOIETIC STEM CELL MOBILISATION
     Dosage: 6 MILLIGRAM
     Route: 065
  10. PLERIXAFOR [Concomitant]
     Active Substance: PLERIXAFOR
     Indication: NON-HODGKIN^S LYMPHOMA
  11. THIOTEPA. [Concomitant]
     Active Substance: THIOTEPA
     Indication: NON-HODGKIN^S LYMPHOMA
     Dosage: 5 MILLIGRAM, BID
  12. CISPLATIN. [Concomitant]
     Active Substance: CISPLATIN
     Indication: NON-HODGKIN^S LYMPHOMA
     Dosage: 100 MILLIGRAM/SQ. METER
  13. MELPHALAN. [Concomitant]
     Active Substance: MELPHALAN
     Indication: NON-HODGKIN^S LYMPHOMA
     Dosage: 140 MILLIGRAM/SQ. METER
  14. PEGFILGRASTIM [Suspect]
     Active Substance: PEGFILGRASTIM
     Indication: OFF LABEL USE

REACTIONS (6)
  - Blood culture positive [Unknown]
  - Febrile neutropenia [Unknown]
  - Off label use [Unknown]
  - Death [Fatal]
  - Non-Hodgkin^s lymphoma [Unknown]
  - Hospitalisation [Unknown]
